FAERS Safety Report 16018291 (Version 1)
Quarter: 2019Q1

REPORT INFORMATION
  Report Type: Spontaneous
  Country: US (occurrence: US)
  Receive Date: 20190204
  Receipt Date: 20190204
  Transmission Date: 20190418
  Serious: No
  Sender: FDA-Public Use
  Company Number: None

PATIENT
  Age: 85 Year
  Sex: Male

DRUGS (2)
  1. MELOXICAM 15MG [Suspect]
     Active Substance: MELOXICAM
     Indication: PROSTATE CANCER
     Dosage: OTHER
     Route: 058
     Dates: start: 201710
  2. MELOXICAM 15MG [Suspect]
     Active Substance: MELOXICAM
     Indication: BONE CANCER
     Dosage: OTHER
     Route: 058
     Dates: start: 201710

REACTIONS (3)
  - Chest pain [None]
  - Gastrooesophageal reflux disease [None]
  - Feeling jittery [None]

NARRATIVE: CASE EVENT DATE: 20190201
